FAERS Safety Report 8209455-8 (Version None)
Quarter: 2012Q1

REPORT INFORMATION
  Report Type: 
  Country: None (occurrence: None)
  Receive Date: 20120314
  Receipt Date: 20120308
  Transmission Date: 20120608
  Serious: Yes (Death, Hospitalization)
  Sender: FDA-Public Use
  Company Number: FR-CELGENEUS-056-C5013-08021417

PATIENT
  Sex: Male
  Weight: 71 kg

DRUGS (10)
  1. ACETAMINOPHEN [Concomitant]
     Route: 048
  2. TRANSFUSION [Concomitant]
     Route: 041
     Dates: start: 20051001
  3. TRANSFUSION [Concomitant]
     Dosage: 3 CG
     Route: 041
     Dates: start: 20071214, end: 20071214
  4. XALATAN [Concomitant]
     Route: 065
  5. POLYETHYLENE GLYCOL [Concomitant]
     Route: 048
  6. PANTOPRAZOLE SODIUM [Concomitant]
     Route: 048
  7. DIGOXIN [Concomitant]
     Route: 048
  8. LENALIDOMIDE [Suspect]
     Dosage: 5 MILLIGRAM
     Route: 048
     Dates: start: 20070510, end: 20070830
  9. LENALIDOMIDE [Suspect]
     Dosage: 10 MILLIGRAM
     Route: 048
     Dates: start: 20070409, end: 20070501
  10. PREVISCAN [Concomitant]
     Route: 048

REACTIONS (8)
  - NEUTROPENIA [None]
  - NO THERAPEUTIC RESPONSE [None]
  - CLOSTRIDIUM DIFFICILE SEPSIS [None]
  - MYELODYSPLASTIC SYNDROME [None]
  - PYREXIA [None]
  - SEPSIS SYNDROME [None]
  - ESCHERICHIA INFECTION [None]
  - ENTEROCOLITIS INFECTIOUS [None]
